FAERS Safety Report 7726982-8 (Version None)
Quarter: 2011Q3

REPORT INFORMATION
  Report Type: 
  Country: None (occurrence: None)
  Receive Date: 20110902
  Receipt Date: 20110830
  Transmission Date: 20111222
  Serious: Yes (Other)
  Sender: FDA-Public Use
  Company Number: US-PFIZER INC-2011149687

PATIENT
  Sex: Female

DRUGS (4)
  1. CYMBALTA [Concomitant]
     Dosage: UNK
     Dates: end: 20110101
  2. LYRICA [Suspect]
     Indication: FIBROMYALGIA
     Dosage: 75 MG, 2X/DAY
     Dates: start: 20090801, end: 20110101
  3. DICLOFENAC [Concomitant]
     Dosage: UNK
  4. ZOLOFT [Concomitant]
     Dosage: UNK

REACTIONS (2)
  - SOMNOLENCE [None]
  - IMPAIRED WORK ABILITY [None]
